FAERS Safety Report 9565582 (Version 1)
Quarter: 2013Q3

REPORT INFORMATION
  Report Type: Report from Study
  Country: JP (occurrence: JP)
  Receive Date: 20130930
  Receipt Date: 20130930
  Transmission Date: 20140515
  Serious: Yes (Life-Threatening)
  Sender: FDA-Public Use
  Company Number: JP-009507513-1309JPN013981

PATIENT
  Sex: Female

DRUGS (1)
  1. DIAZOXIDE [Suspect]
     Indication: HYPOGLYCAEMIA
     Dosage: 4.25 MG, BID
     Route: 048
     Dates: start: 20120316, end: 20120319

REACTIONS (1)
  - Cardiac failure congestive [Recovered/Resolved]
